FAERS Safety Report 18721479 (Version 1)
Quarter: 2021Q1

REPORT INFORMATION
  Report Type: Spontaneous
  Country: US (occurrence: US)
  Receive Date: 20210110
  Receipt Date: 20210110
  Transmission Date: 20210419
  Serious: Yes (Other)
  Sender: FDA-Public Use
  Company Number: US-UCBSA-2020055276

PATIENT

DRUGS (1)
  1. CIMZIA [Suspect]
     Active Substance: CERTOLIZUMAB PEGOL
     Indication: PRODUCT USED FOR UNKNOWN INDICATION

REACTIONS (6)
  - Head injury [Unknown]
  - Inflammatory marker increased [Unknown]
  - Generalised tonic-clonic seizure [Unknown]
  - Feeling abnormal [Unknown]
  - Arthropathy [Unknown]
  - Drug ineffective [Unknown]
